FAERS Safety Report 9178728 (Version 2)
Quarter: 2012Q4

REPORT INFORMATION
  Report Type: 
  Country: US (occurrence: US)
  Receive Date: 20121029
  Receipt Date: 20121029
  Transmission Date: 20130627
  Serious: No
  Sender: FDA-Public Use
  Company Number: US-MYLANLABS-2012S1002373

PATIENT
  Age: 34 Year
  Sex: Female

DRUGS (14)
  1. DIAZEPAM [Suspect]
     Indication: PANIC ATTACK
     Route: 048
     Dates: start: 20110928, end: 201110
  2. DIAZEPAM [Suspect]
     Indication: ANXIETY
     Route: 048
     Dates: start: 20110928, end: 201110
  3. DIAZEPAM [Suspect]
     Indication: AGORAPHOBIA
     Route: 048
     Dates: start: 20110928, end: 201110
  4. DIAZEPAM [Suspect]
     Indication: OBSESSIVE-COMPULSIVE DISORDER
     Route: 048
     Dates: start: 20110928, end: 201110
  5. DIAZEPAM [Suspect]
     Indication: INSOMNIA
     Route: 048
     Dates: start: 20110928, end: 201110
  6. DIAZEPAM [Suspect]
     Indication: PANIC ATTACK
     Route: 048
     Dates: start: 201110
  7. DIAZEPAM [Suspect]
     Indication: ANXIETY
     Route: 048
     Dates: start: 201110
  8. DIAZEPAM [Suspect]
     Indication: AGORAPHOBIA
     Route: 048
     Dates: start: 201110
  9. DIAZEPAM [Suspect]
     Indication: OBSESSIVE-COMPULSIVE DISORDER
     Route: 048
     Dates: start: 201110
  10. DIAZEPAM [Suspect]
     Indication: INSOMNIA
     Route: 048
     Dates: start: 201110
  11. IRON [Concomitant]
     Dosage: Iron replacement
     Dates: end: 201101
  12. NEOSPORIN /00038301/ [Concomitant]
  13. ALOE VERA [Concomitant]
  14. AVENO /01337101/ [Concomitant]

REACTIONS (6)
  - Drug effect decreased [Not Recovered/Not Resolved]
  - Anxiety [Not Recovered/Not Resolved]
  - Oropharyngeal pain [Recovered/Resolved]
  - Furuncle [Not Recovered/Not Resolved]
  - Skin burning sensation [Not Recovered/Not Resolved]
  - Pruritus [Not Recovered/Not Resolved]
